FAERS Safety Report 11127330 (Version 2)
Quarter: 2015Q2

REPORT INFORMATION
  Report Type: Report from Study
  Country: US (occurrence: US)
  Receive Date: 20150521
  Receipt Date: 20150623
  Transmission Date: 20150821
  Serious: Yes (Hospitalization, Other)
  Sender: FDA-Public Use
  Company Number: US-AMGEN-USASL2015047847

PATIENT
  Age: 50 Year
  Sex: Female

DRUGS (1)
  1. ENBREL [Suspect]
     Active Substance: ETANERCEPT
     Indication: RHEUMATOID ARTHRITIS
     Dosage: 50 MG, QWK
     Route: 065
     Dates: start: 20040824

REACTIONS (13)
  - Peripheral swelling [Not Recovered/Not Resolved]
  - Joint swelling [Recovered/Resolved]
  - Injection site urticaria [Not Recovered/Not Resolved]
  - Pain in extremity [Not Recovered/Not Resolved]
  - Abasia [Recovered/Resolved]
  - Arthralgia [Recovered/Resolved]
  - Knee arthroplasty [Recovered/Resolved]
  - Tooth disorder [Recovered/Resolved]
  - Injection site pain [Not Recovered/Not Resolved]
  - Injection site discolouration [Not Recovered/Not Resolved]
  - Blood calcium decreased [Recovered/Resolved]
  - Finger deformity [Not Recovered/Not Resolved]
  - Elbow deformity [Not Recovered/Not Resolved]

NARRATIVE: CASE EVENT DATE: 2007
